FAERS Safety Report 14029647 (Version 1)
Quarter: 2017Q4

REPORT INFORMATION
  Report Type: Spontaneous
  Country: US (occurrence: US)
  Receive Date: 20171002
  Receipt Date: 20171002
  Transmission Date: 20180321
  Serious: No
  Sender: FDA-Public Use
  Company Number: US-JAZZ-2017-US-011472

PATIENT
  Sex: Female

DRUGS (18)
  1. VITAMIN D                          /00107901/ [Concomitant]
     Active Substance: ERGOCALCIFEROL
  2. PROTAMIN                           /00187402/ [Concomitant]
  3. CENTRUM SILVER                     /02363801/ [Concomitant]
     Active Substance: MINERALS\VITAMINS
  4. CYMBALTA [Concomitant]
     Active Substance: DULOXETINE HYDROCHLORIDE
  5. LATISSE [Concomitant]
     Active Substance: BIMATOPROST
  6. ESTRADIOL. [Concomitant]
     Active Substance: ESTRADIOL
  7. XYREM [Suspect]
     Active Substance: SODIUM OXYBATE
     Indication: NARCOLEPSY
     Dosage: 2.25G, BID
     Route: 048
     Dates: start: 201312, end: 201312
  8. PROGESTERONE. [Concomitant]
     Active Substance: PROGESTERONE
  9. NUVIGIL [Concomitant]
     Active Substance: ARMODAFINIL
  10. TRAMADOL HCL [Concomitant]
     Active Substance: TRAMADOL HYDROCHLORIDE
  11. CALCIUM + D3                       /00944201/ [Concomitant]
     Active Substance: CALCIUM CARBONATE\CHOLECALCIFEROL
  12. XYREM [Suspect]
     Active Substance: SODIUM OXYBATE
     Dosage: 4.5G, BID
     Route: 048
     Dates: start: 201606, end: 2017
  13. DEXMETHYLPHENIDATE [Concomitant]
     Active Substance: DEXMETHYLPHENIDATE HYDROCHLORIDE
  14. XYREM [Suspect]
     Active Substance: SODIUM OXYBATE
     Dosage: DOSE ADJUSTMENTS
     Route: 048
     Dates: start: 201312, end: 201606
  15. NYSTATIN. [Concomitant]
     Active Substance: NYSTATIN
  16. RETIN-A [Concomitant]
     Active Substance: TRETINOIN
  17. PROMETHAZINE HCL [Concomitant]
     Active Substance: PROMETHAZINE HYDROCHLORIDE
  18. CALCIUM + VITAMIN D                /00944201/ [Concomitant]
     Active Substance: CALCIUM CARBONATE\CHOLECALCIFEROL

REACTIONS (1)
  - Fibromyalgia [Unknown]
